FAERS Safety Report 23838113 (Version 1)
Quarter: 2024Q2

REPORT INFORMATION
  Report Type: Spontaneous
  Country: US (occurrence: US)
  Receive Date: 20240509
  Receipt Date: 20240509
  Transmission Date: 20240715
  Serious: Yes (Disabling)
  Sender: FDA-Public Use
  Company Number: US-SA-SAC20240507000199

PATIENT
  Sex: Male

DRUGS (24)
  1. DUPIXENT [Suspect]
     Active Substance: DUPILUMAB
     Indication: Dermatitis atopic
     Dosage: 300 MG, QOW
     Route: 058
     Dates: start: 20220324
  2. ALBUTEROL SULFATE [Concomitant]
     Active Substance: ALBUTEROL SULFATE
  3. ALBUTEROL SULFATE [Concomitant]
     Active Substance: ALBUTEROL SULFATE
  4. ATORVASTATIN [Concomitant]
     Active Substance: ATORVASTATIN
  5. ATORVASTATIN [Concomitant]
     Active Substance: ATORVASTATIN
  6. BREO ELLIPTA [Concomitant]
     Active Substance: FLUTICASONE FUROATE\VILANTEROL TRIFENATATE
  7. BREO ELLIPTA [Concomitant]
     Active Substance: FLUTICASONE FUROATE\VILANTEROL TRIFENATATE
  8. HYDROCHLOROTHIAZIDE [Concomitant]
     Active Substance: HYDROCHLOROTHIAZIDE
  9. CARVEDILOL [Concomitant]
     Active Substance: CARVEDILOL
  10. CARVEDILOL [Concomitant]
     Active Substance: CARVEDILOL
  11. CLOBETASOL [Concomitant]
     Active Substance: CLOBETASOL
  12. CLOBETASOL [Concomitant]
     Active Substance: CLOBETASOL
  13. METHYLPREDNISOLONE [Concomitant]
     Active Substance: METHYLPREDNISOLONE
  14. GABAPENTIN [Concomitant]
     Active Substance: GABAPENTIN
  15. GABAPENTIN [Concomitant]
     Active Substance: GABAPENTIN
     Dosage: 125MG
  16. IPRATROPIUM [Concomitant]
     Active Substance: IPRATROPIUM
  17. IPRATROPIUM [Concomitant]
     Active Substance: IPRATROPIUM
  18. KETOROLAC [Concomitant]
     Active Substance: KETOROLAC TROMETHAMINE
  19. KETOROLAC [Concomitant]
     Active Substance: KETOROLAC TROMETHAMINE
  20. MESALAMINE [Concomitant]
     Active Substance: MESALAMINE
  21. MESALAMINE [Concomitant]
     Active Substance: MESALAMINE
  22. PREDNISOLONE [Concomitant]
     Active Substance: PREDNISOLONE
  23. PREDNISOLONE [Concomitant]
     Active Substance: PREDNISOLONE
  24. LOSARTAN POTASSIUM [Concomitant]
     Active Substance: LOSARTAN POTASSIUM

REACTIONS (3)
  - Loss of personal independence in daily activities [Unknown]
  - Asthma [Unknown]
  - Dermatitis atopic [Unknown]
